FAERS Safety Report 7077572-4 (Version None)
Quarter: 2010Q4

REPORT INFORMATION
  Report Type: 
  Country: None (occurrence: None)
  Receive Date: 20101101
  Receipt Date: 20101025
  Transmission Date: 20110411
  Serious: Yes (Hospitalization)
  Sender: FDA-Public Use
  Company Number: DE-TEVA-232662ISR

PATIENT
  Sex: Male

DRUGS (17)
  1. PREDNISOLONE [Suspect]
     Indication: PROSTATE CANCER METASTATIC
     Route: 048
     Dates: start: 20081114, end: 20081228
  2. PLACEBO [Suspect]
     Indication: PROSTATE CANCER METASTATIC
     Route: 048
     Dates: start: 20081114, end: 20081228
  3. HYDROCHLOROTHIAZIDE [Concomitant]
     Indication: OEDEMA PERIPHERAL
     Dates: start: 20090106
  4. ZOLPIDEM [Concomitant]
     Indication: SLEEP DISORDER
     Route: 048
     Dates: start: 20090106
  5. MACROGOL [Concomitant]
     Indication: PROPHYLAXIS
     Route: 048
     Dates: start: 20090106
  6. IBUPROFEN [Concomitant]
     Indication: PAIN
     Route: 048
     Dates: start: 20090106
  7. TELMISARTAN [Concomitant]
     Indication: HYPERTENSION
     Route: 048
  8. PHENPROCOUMON [Concomitant]
     Indication: THROMBOSIS
     Route: 048
     Dates: start: 20040701
  9. PARACETAMOL [Concomitant]
     Indication: BACK PAIN
     Dates: start: 20080101
  10. LEUPROLIDE ACETATE [Concomitant]
     Indication: BLOOD TESTOSTERONE ABNORMAL
     Route: 058
     Dates: start: 20081114
  11. ALLOPURINOL [Concomitant]
     Indication: BLOOD URIC ACID INCREASED
     Route: 048
     Dates: start: 20090106
  12. MAGNESIUM [Concomitant]
     Indication: MEDICAL DIET
     Route: 048
     Dates: start: 20090106
  13. CALCIUM [Concomitant]
     Indication: MEDICAL DIET
     Route: 048
     Dates: start: 20090106
  14. ENOXAPARIN SODIUM [Concomitant]
     Indication: PROPHYLAXIS
     Route: 058
     Dates: start: 20090106
  15. TRAMADOL [Concomitant]
     Indication: PAIN
     Route: 048
     Dates: start: 20090106
  16. METAMIZOLE SODIUM [Concomitant]
     Indication: PAIN
     Route: 048
     Dates: start: 20090106
  17. LEUPROLIDE ACETATE [Concomitant]
     Dates: start: 19990201

REACTIONS (1)
  - DYSPNOEA [None]
